FAERS Safety Report 25897914 (Version 1)
Quarter: 2025Q4

REPORT INFORMATION
  Report Type: Spontaneous
  Country: EU (occurrence: EU)
  Receive Date: 20251008
  Receipt Date: 20251008
  Transmission Date: 20260119
  Serious: No
  Sender: PFIZER
  Company Number: EU-PFIZER INC-PV202500048701

PATIENT
  Age: 11 Year
  Sex: Male

DRUGS (2)
  1. NGENLA [Suspect]
     Active Substance: SOMATROGON-GHLA
     Dosage: 17 MG
     Route: 058
  2. NGENLA [Suspect]
     Active Substance: SOMATROGON-GHLA
     Dosage: 19 MG, WEEKLY
     Route: 058

REACTIONS (2)
  - Injection site pain [Recovered/Resolved]
  - Lack of injection site rotation [Recovering/Resolving]
